FAERS Safety Report 9370923 (Version 3)
Quarter: 2013Q3

REPORT INFORMATION
  Report Type: Spontaneous
  Country: DE (occurrence: DE)
  Receive Date: 20130627
  Receipt Date: 20130916
  Transmission Date: 20140515
  Serious: Yes (Other)
  Sender: FDA-Public Use
  Company Number: DE-AMGEN-DEUSP2013044117

PATIENT
  Age: 82 Year
  Sex: Female
  Weight: 54 kg

DRUGS (2)
  1. PROLIA [Suspect]
     Indication: OSTEOPOROSIS
     Dosage: 60 MG, Q6MO
     Route: 058
     Dates: start: 20110530
  2. GINGICAINE [Concomitant]

REACTIONS (14)
  - Pharyngeal disorder [Recovered/Resolved]
  - Dyspnoea [Recovered/Resolved]
  - Tachycardia [Recovered/Resolved]
  - Hypoaesthesia [Not Recovered/Not Resolved]
  - Muscular weakness [Recovered/Resolved]
  - Gastritis [Unknown]
  - Skin exfoliation [Recovering/Resolving]
  - Mucosal inflammation [Unknown]
  - Gastrocardiac syndrome [Unknown]
  - Lacrimation increased [Unknown]
  - Hyperkeratosis [Recovering/Resolving]
  - Skin lesion [Unknown]
  - Pruritus [Unknown]
  - Erythema [Unknown]
